FAERS Safety Report 4399696-2 (Version None)
Quarter: 2004Q3

REPORT INFORMATION
  Report Type: 
  Country: None (occurrence: None)
  Receive Date: 20040713
  Receipt Date: 20040628
  Transmission Date: 20050211
  Serious: Yes (Other)
  Sender: FDA-Public Use
  Company Number: US-JNJFOC-20040404467

PATIENT
  Age: 70 Year
  Sex: Female
  Weight: 56.6996 kg

DRUGS (8)
  1. REMICADE [Suspect]
     Indication: RHEUMATOID ARTHRITIS
     Dosage: 5 MG/KG; INTRAVENOUS
     Route: 042
     Dates: start: 20030320
  2. METHOTREXATE [Concomitant]
  3. PREDNISONE [Concomitant]
  4. FOLATE (FOLATE SODIUM) [Concomitant]
  5. TOPROL (METOPROLOL SUCCINATE) [Concomitant]
  6. SYNTHROID [Concomitant]
  7. DITROPAN [Concomitant]
  8. ESTROGEN (ESTROGEN NOS) [Concomitant]

REACTIONS (1)
  - CHRONIC LYMPHOCYTIC LEUKAEMIA [None]
